FAERS Safety Report 22987196 (Version 3)
Quarter: 2023Q4

REPORT INFORMATION
  Report Type: Report from Study
  Country: US (occurrence: US)
  Receive Date: 20230926
  Receipt Date: 20231222
  Transmission Date: 20240109
  Serious: Yes (Other)
  Sender: FDA-Public Use
  Company Number: US-002147023-NVSC2023US204309

PATIENT
  Sex: Female

DRUGS (1)
  1. ENTRESTO [Suspect]
     Active Substance: SACUBITRIL\VALSARTAN
     Indication: Product used for unknown indication
     Dosage: UNK
     Route: 048
     Dates: start: 202309

REACTIONS (6)
  - Wrist fracture [Recovering/Resolving]
  - Arthralgia [Recovering/Resolving]
  - Blood pressure increased [Unknown]
  - Peripheral coldness [Unknown]
  - Dizziness [Recovering/Resolving]
  - Product dose omission issue [Unknown]
